FAERS Safety Report 24051449 (Version 1)
Quarter: 2024Q3

REPORT INFORMATION
  Report Type: Spontaneous
  Country: CA (occurrence: CA)
  Receive Date: 20240704
  Receipt Date: 20240704
  Transmission Date: 20241016
  Serious: Yes (Other)
  Sender: PFIZER
  Company Number: CA-PFIZER INC-202300377334

PATIENT
  Age: 69 Year
  Sex: Female
  Weight: 95.1 kg

DRUGS (5)
  1. RUXIENCE [Suspect]
     Active Substance: RITUXIMAB-PVVR
     Indication: Anti-neutrophil cytoplasmic antibody positive vasculitis
     Dosage: 1 G, DAY 1 AND DAY 15 (SUBSEQUENT DAY 1)
     Route: 042
     Dates: start: 20231214
  2. RUXIENCE [Suspect]
     Active Substance: RITUXIMAB-PVVR
     Indication: Microscopic polyangiitis
     Dosage: 1000 MG, 2 WEEKS
     Route: 042
     Dates: start: 20231227
  3. RUXIENCE [Suspect]
     Active Substance: RITUXIMAB-PVVR
     Dosage: 500 MG, AFTER 25 WEEKS AND 1 DAY
     Route: 042
     Dates: start: 20240620, end: 20240620
  4. BENADRYL [Concomitant]
     Active Substance: DIPHENHYDRAMINE HYDROCHLORIDE
     Indication: Premedication
     Dosage: 50 MG
     Dates: start: 20231214, end: 20231214
  5. PREDNISONE [Concomitant]
     Active Substance: PREDNISONE
     Dosage: UNK

REACTIONS (16)
  - Cataract [Unknown]
  - Headache [Recovering/Resolving]
  - Oropharyngeal pain [Unknown]
  - Dizziness [Recovering/Resolving]
  - Ear discomfort [Recovering/Resolving]
  - Nausea [Recovering/Resolving]
  - Haematoma [Recovering/Resolving]
  - Dyspnoea [Recovering/Resolving]
  - Chest pain [Not Recovered/Not Resolved]
  - Weight increased [Recovering/Resolving]
  - Cardiac disorder [Unknown]
  - Palpitations [Unknown]
  - Off label use [Unknown]
  - Inappropriate schedule of product administration [Unknown]
  - Off label use [Unknown]
  - Intentional product use issue [Unknown]

NARRATIVE: CASE EVENT DATE: 20230101
